FAERS Safety Report 25428155 (Version 2)
Quarter: 2025Q3

REPORT INFORMATION
  Report Type: Report from Study
  Country: US (occurrence: US)
  Receive Date: 20250612
  Receipt Date: 20250929
  Transmission Date: 20251021
  Serious: No
  Sender: AVERITAS
  Company Number: US-GRUNENTHAL-2025-108050

PATIENT
  Sex: Female

DRUGS (1)
  1. QUTENZA [Suspect]
     Active Substance: CAPSAICIN
     Indication: Diabetic neuropathy
     Route: 061
     Dates: start: 20250416, end: 20250416

REACTIONS (4)
  - Pain [Recovered/Resolved]
  - Sinusitis [Unknown]
  - Dry skin [Unknown]
  - Peripheral coldness [Unknown]
